FAERS Safety Report 4897214-3 (Version None)
Quarter: 2006Q1

REPORT INFORMATION
  Report Type: 
  Country: None (occurrence: None)
  Receive Date: 20060127
  Receipt Date: 20060123
  Transmission Date: 20060701
  Serious: Yes (Hospitalization, Other)
  Sender: FDA-Public Use
  Company Number: FRWYE320923JAN06

PATIENT
  Age: 78 Year
  Sex: Male

DRUGS (11)
  1. RAPAMUNE [Suspect]
     Indication: ACUTE MYELOID LEUKAEMIA
     Dosage: 4 MG TOTAL DAILY, ORAL; SEE IMAGE
     Route: 048
     Dates: start: 20051022, end: 20051106
  2. RAPAMUNE [Suspect]
     Indication: ACUTE MYELOID LEUKAEMIA
     Dosage: 4 MG TOTAL DAILY, ORAL; SEE IMAGE
     Route: 048
     Dates: start: 20051112, end: 20051127
  3. RAPAMUNE [Suspect]
     Indication: ACUTE MYELOID LEUKAEMIA
     Dosage: 4 MG TOTAL DAILY, ORAL; SEE IMAGE
     Route: 048
     Dates: start: 20050101
  4. CYTARABINE [Suspect]
     Indication: ACUTE MYELOID LEUKAEMIA
     Dosage: 40 MG TOTAL DAILY, SC
     Route: 058
     Dates: start: 20051018, end: 20051027
  5. CYTARABINE [Suspect]
     Indication: ACUTE MYELOID LEUKAEMIA
     Dosage: 40 MG TOTAL DAILY, SC
     Route: 058
     Dates: start: 20051108, end: 20051117
  6. CYTARABINE [Suspect]
     Indication: ACUTE MYELOID LEUKAEMIA
     Dosage: 40 MG TOTAL DAILY, SC
     Route: 058
     Dates: start: 20050101
  7. CIPROFLOXACIN [Concomitant]
  8. CEFUROXIME AXETIL [Concomitant]
  9. DIAMICRON (GLICLAZIDE) [Concomitant]
  10. GLUCOPHAGE [Concomitant]
  11. ATACAND [Concomitant]

REACTIONS (7)
  - ACUTE PULMONARY OEDEMA [None]
  - ANAEMIA [None]
  - ANGINA PECTORIS [None]
  - ATRIAL FLUTTER [None]
  - CONDITION AGGRAVATED [None]
  - OEDEMA PERIPHERAL [None]
  - SINUS TACHYCARDIA [None]
